FAERS Safety Report 8614445-7 (Version None)
Quarter: 2012Q3

REPORT INFORMATION
  Report Type: 
  Country: None (occurrence: None)
  Receive Date: 20120823
  Receipt Date: 20120817
  Transmission Date: 20120928
  Serious: Yes (Hospitalization)
  Sender: FDA-Public Use
  Company Number: PHHY2012JP072185

PATIENT
  Age: 83 Year
  Sex: Female

DRUGS (1)
  1. RIVASTIGIME TARTRATE [Suspect]
     Indication: DEMENTIA ALZHEIMER'S TYPE
     Dosage: 4.5 MG, DAILY
     Route: 062

REACTIONS (1)
  - AMMONIA INCREASED [None]
